FAERS Safety Report 25265419 (Version 1)
Quarter: 2025Q2

REPORT INFORMATION
  Report Type: Spontaneous
  Country: IT (occurrence: IT)
  Receive Date: 20250502
  Receipt Date: 20250502
  Transmission Date: 20250717
  Serious: Yes (Other)
  Sender: MYLAN
  Company Number: IT-SA-2025SA114556

PATIENT
  Sex: Male

DRUGS (24)
  1. CITALOPRAM [Suspect]
     Active Substance: CITALOPRAM
     Indication: Product used for unknown indication
  2. CITALOPRAM [Suspect]
     Active Substance: CITALOPRAM
  3. CITALOPRAM [Suspect]
     Active Substance: CITALOPRAM
     Route: 065
  4. CITALOPRAM [Suspect]
     Active Substance: CITALOPRAM
     Route: 065
  5. CITALOPRAM [Suspect]
     Active Substance: CITALOPRAM
  6. CITALOPRAM [Suspect]
     Active Substance: CITALOPRAM
  7. CITALOPRAM [Suspect]
     Active Substance: CITALOPRAM
     Route: 065
  8. CITALOPRAM [Suspect]
     Active Substance: CITALOPRAM
     Route: 065
  9. DELORAZEPAM [Suspect]
     Active Substance: DELORAZEPAM
     Indication: Product used for unknown indication
  10. DELORAZEPAM [Suspect]
     Active Substance: DELORAZEPAM
     Route: 065
  11. DELORAZEPAM [Suspect]
     Active Substance: DELORAZEPAM
     Route: 065
  12. DELORAZEPAM [Suspect]
     Active Substance: DELORAZEPAM
  13. VALPROIC ACID [Suspect]
     Active Substance: VALPROIC ACID
     Indication: Obsessive-compulsive disorder
     Dosage: 500 MG, BID (500 IN THE AFTERNOON AND EVENING)
     Dates: start: 202501
  14. VALPROIC ACID [Suspect]
     Active Substance: VALPROIC ACID
     Indication: Agitated depression
     Dosage: 500 MG, BID (500 IN THE AFTERNOON AND EVENING)
     Dates: start: 202501
  15. VALPROIC ACID [Suspect]
     Active Substance: VALPROIC ACID
     Dosage: 500 MG, BID (500 IN THE AFTERNOON AND EVENING)
     Route: 065
     Dates: start: 202501
  16. VALPROIC ACID [Suspect]
     Active Substance: VALPROIC ACID
     Dosage: 500 MG, BID (500 IN THE AFTERNOON AND EVENING)
     Route: 065
     Dates: start: 202501
  17. VALPROIC ACID [Suspect]
     Active Substance: VALPROIC ACID
  18. VALPROIC ACID [Suspect]
     Active Substance: VALPROIC ACID
  19. VALPROIC ACID [Suspect]
     Active Substance: VALPROIC ACID
     Route: 065
  20. VALPROIC ACID [Suspect]
     Active Substance: VALPROIC ACID
     Route: 065
  21. LEUCOVORIN CALCIUM [Concomitant]
     Active Substance: LEUCOVORIN CALCIUM
     Indication: Blood folate decreased
  22. LEUCOVORIN CALCIUM [Concomitant]
     Active Substance: LEUCOVORIN CALCIUM
     Route: 065
  23. LEUCOVORIN CALCIUM [Concomitant]
     Active Substance: LEUCOVORIN CALCIUM
     Route: 065
  24. LEUCOVORIN CALCIUM [Concomitant]
     Active Substance: LEUCOVORIN CALCIUM

REACTIONS (7)
  - Suicidal ideation [Recovered/Resolved]
  - Obsessive-compulsive disorder [Not Recovered/Not Resolved]
  - Condition aggravated [Not Recovered/Not Resolved]
  - Thyroiditis [Not Recovered/Not Resolved]
  - Mood swings [Not Recovered/Not Resolved]
  - Agitated depression [Not Recovered/Not Resolved]
  - Alanine aminotransferase [Not Recovered/Not Resolved]

NARRATIVE: CASE EVENT DATE: 20250401
